FAERS Safety Report 17798031 (Version 1)
Quarter: 2020Q2

REPORT INFORMATION
  Report Type: Spontaneous
  Country: US (occurrence: US)
  Receive Date: 20200516
  Receipt Date: 20200516
  Transmission Date: 20200714
  Serious: Yes (Other)
  Sender: FDA-Public Use
  Company Number: None

PATIENT
  Age: 48 Year
  Sex: Female
  Weight: 45.9 kg

DRUGS (9)
  1. CALCIUM [Concomitant]
     Active Substance: CALCIUM
  2. SYNTHROID [Concomitant]
     Active Substance: LEVOTHYROXINE SODIUM
  3. WELLBUTRIN [Concomitant]
     Active Substance: BUPROPION HYDROCHLORIDE
  4. VITAMINS: B, C AND D [Concomitant]
  5. IRON [Concomitant]
     Active Substance: IRON
  6. ETONOGESTREL-EE VAGINAL RING [Suspect]
     Active Substance: ETHINYL ESTRADIOL\ETONOGESTREL
     Indication: CONTRACEPTION
     Dosage: ?          OTHER FREQUENCY:ONCE A MONTH.;?
     Route: 067
     Dates: start: 20200115
  7. LEXAPRO [Concomitant]
     Active Substance: ESCITALOPRAM OXALATE
  8. GABAPENTIN. [Concomitant]
     Active Substance: GABAPENTIN
  9. CORTEF [Concomitant]
     Active Substance: HYDROCORTISONE

REACTIONS (3)
  - Depression [None]
  - Mood swings [None]
  - Product substitution issue [None]

NARRATIVE: CASE EVENT DATE: 20200215
